FAERS Safety Report 20255017 (Version 1)
Quarter: 2021Q4

REPORT INFORMATION
  Report Type: Report from Study
  Country: US (occurrence: US)
  Receive Date: 20211230
  Receipt Date: 20211230
  Transmission Date: 20220303
  Serious: Yes (Hospitalization, Other)
  Sender: FDA-Public Use
  Company Number: US-PFIZER INC-202101822301

PATIENT
  Age: 67 Year
  Sex: Male
  Weight: 79.365 kg

DRUGS (5)
  1. XELJANZ [Suspect]
     Active Substance: TOFACITINIB CITRATE
     Indication: Colitis ulcerative
     Dosage: UNK
     Route: 048
  2. HUMIRA [Suspect]
     Active Substance: ADALIMUMAB
     Indication: Colitis ulcerative
     Dosage: 40MG / 0.4ML, (40 MG,1 IN 2 WK)
     Route: 058
     Dates: start: 2016, end: 2017
  3. HUMIRA [Suspect]
     Active Substance: ADALIMUMAB
     Dosage: 40 MG, (40 MG,1 IN 2 WK)
     Route: 058
     Dates: start: 20211021
  4. MODERNA COVID-19 VACCINE [Concomitant]
     Active Substance: ELASOMERAN
     Indication: COVID-19 immunisation
     Dosage: DOSE 1 SINGLE
     Route: 030
     Dates: start: 20210301, end: 20210301
  5. MODERNA COVID-19 VACCINE [Concomitant]
     Active Substance: ELASOMERAN
     Dosage: DOSE 2 SINGLE
     Route: 030
     Dates: start: 20210401, end: 20210401

REACTIONS (21)
  - Large intestine perforation [Recovering/Resolving]
  - Post procedural fistula [Recovered/Resolved]
  - Stoma creation [Recovering/Resolving]
  - Colitis ulcerative [Recovered/Resolved]
  - Dysstasia [Recovered/Resolved]
  - Fistula discharge [Recovering/Resolving]
  - Asthenia [Recovered/Resolved]
  - Balance disorder [Recovered/Resolved]
  - Hypophagia [Recovered/Resolved]
  - Malnutrition [Recovered/Resolved]
  - Protein total decreased [Recovered/Resolved]
  - Muscular weakness [Recovered/Resolved]
  - Injection site discomfort [Recovered/Resolved]
  - Injection site pain [Recovered/Resolved]
  - Gait inability [Recovered/Resolved]
  - Dysstasia [Recovered/Resolved]
  - Condition aggravated [Recovered/Resolved]
  - Weight decreased [Recovering/Resolving]
  - Protein total abnormal [Recovered/Resolved]
  - Gait disturbance [Recovered/Resolved]
  - Diarrhoea [Unknown]

NARRATIVE: CASE EVENT DATE: 20200601
